APPROVED DRUG PRODUCT: TRIACIN-C
Active Ingredient: CODEINE PHOSPHATE; PSEUDOEPHEDRINE HYDROCHLORIDE; TRIPROLIDINE HYDROCHLORIDE
Strength: 10MG/5ML;30MG/5ML;1.25MG/5ML
Dosage Form/Route: SYRUP;ORAL
Application: A088704 | Product #001
Applicant: ANIMA PHARMACEUTICALS PVT LTD
Approved: Mar 22, 1985 | RLD: No | RS: Yes | Type: RX